FAERS Safety Report 19290446 (Version 2)
Quarter: 2022Q2

REPORT INFORMATION
  Report Type: Spontaneous
  Country: US (occurrence: US)
  Receive Date: 20210521
  Receipt Date: 20220526
  Transmission Date: 20220721
  Serious: No
  Sender: FDA-Public Use
  Company Number: US-RADIUS HEALTH INC.-2021US001623

PATIENT
  Age: 76 Year
  Sex: Female
  Weight: 72.1 kg

DRUGS (17)
  1. TYMLOS [Suspect]
     Active Substance: ABALOPARATIDE
     Indication: Senile osteoporosis
     Dosage: 80 MCG, QD
     Route: 058
     Dates: start: 20201218, end: 20210420
  2. CALCIUM 600 + D3 PLUS MINERALS [Concomitant]
     Indication: Product used for unknown indication
     Dosage: 600 MG (1500MG)-400 UNIT, 1 TABLET BID
     Route: 048
     Dates: start: 20160208
  3. GINKGO [Concomitant]
     Active Substance: GINKGO
     Indication: Product used for unknown indication
     Dosage: UNK
     Dates: start: 20170508
  4. GLUCOSAMIN CHONDROITIN [CHONDROITIN SULFATE SODIUM;GLUCOSAMINE SULFATE [Concomitant]
     Indication: Product used for unknown indication
     Dosage: 750MG-600MG QD
     Route: 048
     Dates: start: 20160208
  5. HYDROCODONE BITARTRATE AND ACETAMINOPHEN [Concomitant]
     Active Substance: ACETAMINOPHEN\HYDROCODONE BITARTRATE
     Indication: Product used for unknown indication
     Dosage: 5MG-325MG, 1 TAB BID PRN FOR 15 DAYS
  6. LATANOPROST [Concomitant]
     Active Substance: LATANOPROST
     Indication: Product used for unknown indication
     Dosage: 0.005 % 1 DROP IN BOTH EYES NIGHTLY
  7. VITAMINS [Concomitant]
     Active Substance: VITAMINS
     Indication: Product used for unknown indication
     Dosage: UNK
     Dates: start: 20201112
  8. NAPROXEN [Concomitant]
     Active Substance: NAPROXEN
     Indication: Product used for unknown indication
     Dosage: 1/2 TO 1 TABLET BID PRN WITH FOOD
     Route: 048
  9. NARCAN [Concomitant]
     Active Substance: NALOXONE HYDROCHLORIDE
     Indication: Product used for unknown indication
     Dosage: 4MG (CONTENTS OF 1 NASAL SPRAY) IN ONE NOSTRIL MAY REPEAT 2-3 MIN. IN ALTERNATING NORSTRILS UNTIL ME
     Dates: start: 20210121
  10. OMEPRAZOLE [Concomitant]
     Active Substance: OMEPRAZOLE
     Indication: Product used for unknown indication
     Dosage: 40 MILLIGRAM, QD
     Route: 048
  11. SIMVASTATIN [Concomitant]
     Active Substance: SIMVASTATIN
     Indication: Product used for unknown indication
     Dosage: 20 MILLIGRAM, QD
     Route: 048
  12. STOOL SOFTENER (DOCUSATE) [Concomitant]
     Active Substance: DOCUSATE
     Indication: Constipation
     Dosage: 100 MG QD PRN
  13. TRAZODONE [Concomitant]
     Active Substance: TRAZODONE HYDROCHLORIDE
     Indication: Product used for unknown indication
     Dosage: 100 MILLIGRAM, QD (IN EVENING)
     Route: 048
  14. TYLENOL [Concomitant]
     Active Substance: ACETAMINOPHEN
     Indication: Headache
     Dosage: PRN
     Dates: start: 20201208
  15. CYANOCOBALAMIN [Concomitant]
     Active Substance: CYANOCOBALAMIN
     Indication: Product used for unknown indication
     Dosage: UNK
     Dates: start: 20201208
  16. COVID-19 VACCINE [Concomitant]
     Indication: COVID-19 immunisation
     Dosage: 30MCG/0.3 ML ONE DOSES
     Dates: start: 20210315, end: 20210315
  17. COVID-19 VACCINE [Concomitant]
     Dosage: 30MCG/0.3 ML ONE DOSES
     Dates: start: 20210222, end: 20210222

REACTIONS (8)
  - Blood pressure increased [Unknown]
  - Diastolic dysfunction [Unknown]
  - Peripheral swelling [Recovered/Resolved]
  - Pulmonary congestion [Recovered/Resolved]
  - Aortic stenosis [Unknown]
  - Joint swelling [Unknown]
  - Blood alkaline phosphatase increased [Unknown]
  - Tachycardia [Recovered/Resolved]

NARRATIVE: CASE EVENT DATE: 20210419
